FAERS Safety Report 7743023-7 (Version None)
Quarter: 2011Q3

REPORT INFORMATION
  Report Type: 
  Country: None (occurrence: None)
  Receive Date: 20110819
  Receipt Date: 20110513
  Transmission Date: 20111222
  Serious: No
  Sender: FDA-Public Use
  Company Number: 033060

PATIENT

DRUGS (2)
  1. ANTIEPILEPTICS [Concomitant]
  2. LACOSAMIDE [Suspect]
     Indication: PARTIAL SEIZURES

REACTIONS (4)
  - NAUSEA [None]
  - SEDATION [None]
  - VISION BLURRED [None]
  - DIPLOPIA [None]
